FAERS Safety Report 8085021-2 (Version None)
Quarter: 2012Q1

REPORT INFORMATION
  Report Type: 
  Country: None (occurrence: None)
  Receive Date: 20120128
  Receipt Date: 20110314
  Transmission Date: 20120608
  Serious: No
  Sender: FDA-Public Use
  Company Number: US-ABBOTT-11P-163-0711206-00

PATIENT
  Age: 69 Year
  Sex: Female

DRUGS (18)
  1. WARFARIN SODIUM [Concomitant]
     Indication: AORTIC VALVE REPLACEMENT
     Dosage: 10MG FOUR DAYS A WEEK
     Route: 048
  2. WARFARIN SODIUM [Concomitant]
     Dosage: 12.5MG FOR THREE DAYS A WEEK
     Route: 048
  3. VITAMIN D [Concomitant]
     Indication: PRODUCT USED FOR UNKNOWN INDICATION
     Dosage: 2000 UNITS DAILY
     Route: 048
  4. VITAMIN B-12 [Concomitant]
     Indication: PRODUCT USED FOR UNKNOWN INDICATION
     Dosage: 500 MCG DAILY
     Route: 048
  5. BIOTIN [Concomitant]
     Indication: PRODUCT USED FOR UNKNOWN INDICATION
     Dosage: 2500 MCG DAILY
     Route: 048
  6. METHOCARBAMOL [Concomitant]
     Indication: BACK PAIN
     Dosage: AS NEEDED
  7. VITAMIN B-12 [Concomitant]
     Indication: PRODUCT USED FOR UNKNOWN INDICATION
     Dosage: 25 MG DAILY
     Route: 048
  8. ZETIA [Concomitant]
     Indication: BLOOD CHOLESTEROL INCREASED
     Dosage: 10 MG QHS
     Route: 048
  9. VESICARE [Concomitant]
     Indication: PRODUCT USED FOR UNKNOWN INDICATION
     Dosage: 10 MG DAILY
     Route: 048
  10. LIPITOR [Concomitant]
     Indication: BLOOD CHOLESTEROL INCREASED
     Dosage: 10 MG DAILY QHS
     Route: 048
  11. BUTALBITAL-APAP-CALL 50/325/40 [Concomitant]
     Indication: PRODUCT USED FOR UNKNOWN INDICATION
     Dosage: BID PRN
     Route: 048
  12. CALCIUM WITH MAGNESIUM AND VITAMIN D [Concomitant]
     Indication: PRODUCT USED FOR UNKNOWN INDICATION
     Dosage: TWO CAPS DAILY
     Route: 048
  13. PREDNISONE TAB [Concomitant]
     Indication: ANKYLOSING SPONDYLITIS
     Dosage: 1  MG DAILY
     Route: 048
  14. ANTIBIOTICS [Concomitant]
     Indication: INFECTION PROPHYLAXIS
     Dosage: AS NEEDED
  15. OMEPRAZOLE [Concomitant]
     Indication: GASTROOESOPHAGEAL REFLUX DISEASE
     Dosage: 20 MG DAILY
     Route: 048
  16. GEMFIBROZIL [Concomitant]
     Indication: PRODUCT USED FOR UNKNOWN INDICATION
     Route: 048
  17. PAIN PATCH [Concomitant]
     Indication: PAIN
     Dosage: AS NEEDED
  18. HUMIRA [Suspect]
     Indication: ANKYLOSING SPONDYLITIS

REACTIONS (5)
  - DEVICE MALFUNCTION [None]
  - DRUG DOSE OMISSION [None]
  - LIQUID PRODUCT PHYSICAL ISSUE [None]
  - HEADACHE [None]
  - ONYCHOMYCOSIS [None]
